FAERS Safety Report 7080365-5 (Version None)
Quarter: 2010Q4

REPORT INFORMATION
  Report Type: 
  Country: None (occurrence: None)
  Receive Date: 20101103
  Receipt Date: 20101029
  Transmission Date: 20110411
  Serious: Yes (Death, Hospitalization)
  Sender: FDA-Public Use
  Company Number: US-JNJFOC-20101100532

PATIENT
  Age: 59 Year
  Sex: Female

DRUGS (5)
  1. DOXORUBICIN HYDROCHLORIDE [Suspect]
     Indication: LUNG CANCER METASTATIC
     Route: 042
  2. RADIATION THERAPY NOS [Suspect]
     Indication: LUNG CANCER METASTATIC
     Dosage: 37.5 GY
     Route: 065
  3. VINCRISTINE [Suspect]
     Indication: LUNG CANCER METASTATIC
     Route: 042
  4. CYCLOPHOSPHAMIDE [Suspect]
     Indication: LUNG CANCER METASTATIC
     Route: 042
  5. INVESTIGATIONAL DRUG [Suspect]
     Indication: COGNITIVE DISORDER
     Dosage: WEEK 1 5MG AM  WEEK 2 5MG AM AND 5MG PM  WEEK 3 10MG AM AND 5MG PM  WEEK 4-24 10MG AM AND 10MG PM
     Route: 048

REACTIONS (8)
  - HAEMOGLOBIN DECREASED [None]
  - HYPOCALCAEMIA [None]
  - HYPOKALAEMIA [None]
  - LUNG CANCER METASTATIC [None]
  - PANCYTOPENIA [None]
  - PLATELET COUNT DECREASED [None]
  - VOMITING [None]
  - WHITE BLOOD CELL COUNT DECREASED [None]
